FAERS Safety Report 17353377 (Version 1)
Quarter: 2020Q1

REPORT INFORMATION
  Report Type: Spontaneous
  Country: US (occurrence: US)
  Receive Date: 20200131
  Receipt Date: 20200131
  Transmission Date: 20200409
  Serious: No
  Sender: FDA-Public Use
  Company Number: US-GW PHARMA-202001USGW00321

PATIENT

DRUGS (2)
  1. EPIDIOLEX [Suspect]
     Active Substance: CANNABIDIOL
     Indication: EPILEPSY
     Dosage: 11.605 MG/KG/DAY, 500 MILLIGRAM, BID
     Route: 048
     Dates: start: 20190107
  2. EPIDIOLEX [Suspect]
     Active Substance: CANNABIDIOL
     Dosage: 11.605 MG/KG/DAY, 333.3 MILLIGRAM, TID (THREE TIMES A DAY)
     Route: 048

REACTIONS (3)
  - Diarrhoea [Recovering/Resolving]
  - Weight decreased [Recovered/Resolved]
  - Decreased appetite [Recovered/Resolved]
